FAERS Safety Report 7987700-1 (Version None)
Quarter: 2011Q4

REPORT INFORMATION
  Report Type: 
  Country: None (occurrence: None)
  Receive Date: 20111216
  Receipt Date: 20110615
  Transmission Date: 20120403
  Serious: No
  Sender: FDA-Public Use
  Company Number: US-BRISTOL-MYERS SQUIBB COMPANY-15703317

PATIENT
  Age: 28 Year
  Sex: Female

DRUGS (4)
  1. ABILIFY [Suspect]
     Indication: BIPOLAR I DISORDER
     Route: 048
     Dates: start: 20100630
  2. ABILIFY [Suspect]
     Indication: OBSESSIVE-COMPULSIVE DISORDER
     Route: 048
     Dates: start: 20100630
  3. LEXAPRO [Suspect]
     Dates: start: 20050606
  4. ABILIFY [Suspect]
     Indication: MANIA
     Route: 048
     Dates: start: 20100630

REACTIONS (5)
  - SUPPRESSED LACTATION [None]
  - STRESS [None]
  - LIVE BIRTH [None]
  - BREAST FEEDING [None]
  - PREGNANCY [None]
